FAERS Safety Report 9334373 (Version 2)
Quarter: 2013Q4

REPORT INFORMATION
  Report Type: Spontaneous
  Country: US (occurrence: US)
  Receive Date: 20130606
  Receipt Date: 20131008
  Transmission Date: 20140711
  Serious: No
  Sender: FDA-Public Use
  Company Number: US-AMGEN-USASP2013032868

PATIENT
  Age: 80 Year
  Sex: Female
  Weight: 52.61 kg

DRUGS (15)
  1. PROLIA [Suspect]
     Indication: OSTEOPOROSIS POSTMENOPAUSAL
     Dosage: 60 MG, UNK
     Route: 058
     Dates: start: 20130329, end: 20130329
  2. SYNTHROID [Concomitant]
  3. TOPAMAX [Concomitant]
  4. FIORICET [Concomitant]
  5. ROBAXIN [Concomitant]
  6. FUROSEMIDE [Concomitant]
  7. CYPROHEPTADINE [Concomitant]
  8. CALAN                              /00014302/ [Concomitant]
  9. ULTRAM                             /00599202/ [Concomitant]
  10. SONATA                             /00061001/ [Concomitant]
  11. PERCOCET                           /00446701/ [Concomitant]
  12. LORTAB                             /00607101/ [Concomitant]
  13. MIDRIN                             /00450801/ [Concomitant]
  14. TRAZODONE [Concomitant]
  15. VALIUM                             /00017001/ [Concomitant]

REACTIONS (1)
  - Weight decreased [Unknown]
